FAERS Safety Report 7008926-X (Version None)
Quarter: 2010Q3

REPORT INFORMATION
  Report Type: 
  Country: None (occurrence: None)
  Receive Date: 20100923
  Receipt Date: 20100913
  Transmission Date: 20110219
  Serious: Yes (Other)
  Sender: FDA-Public Use
  Company Number: PHHY2010US60566

PATIENT
  Sex: Female

DRUGS (4)
  1. RECLAST [Suspect]
     Dosage: 5 MG
     Route: 042
  2. TYLENOL [Concomitant]
  3. VALIUM [Concomitant]
  4. VITAMIN D [Concomitant]

REACTIONS (4)
  - GAIT DISTURBANCE [None]
  - MOVEMENT DISORDER [None]
  - WALKING AID USER [None]
  - WHEELCHAIR USER [None]
